FAERS Safety Report 17971887 (Version 2)
Quarter: 2020Q3

REPORT INFORMATION
  Report Type: Spontaneous
  Country: US (occurrence: US)
  Receive Date: 20200701
  Receipt Date: 20200813
  Transmission Date: 20201103
  Serious: Yes (Other)
  Sender: FDA-Public Use
  Company Number: US-AMGEN-USASP2020102878

PATIENT
  Age: 67 Year
  Sex: Male

DRUGS (1)
  1. OTEZLA [Suspect]
     Active Substance: APREMILAST
     Indication: DERMATITIS ATOPIC
     Dosage: 30 MILLIGRAM, BID
     Route: 048
     Dates: start: 20200609

REACTIONS (4)
  - Rash [Not Recovered/Not Resolved]
  - Pain in extremity [Not Recovered/Not Resolved]
  - Off label use [Unknown]
  - Haemorrhage [Not Recovered/Not Resolved]

NARRATIVE: CASE EVENT DATE: 20200624
